FAERS Safety Report 26202605 (Version 1)
Quarter: 2025Q4

REPORT INFORMATION
  Report Type: Spontaneous
  Country: EU (occurrence: EU)
  Receive Date: 20251226
  Receipt Date: 20251226
  Transmission Date: 20260117
  Serious: Yes (Other)
  Sender: MERCK SHARP & DOHME LLC
  Company Number: None

PATIENT
  Age: 61 Year
  Sex: Female
  Weight: 70 kg

DRUGS (1)
  1. KEYTRUDA [Suspect]
     Active Substance: PEMBROLIZUMAB
     Indication: Breast cancer
     Dosage: 1 CYCLE 07/03//2024 200 MILLIGRAMS (200MG/TOTAL) LAST CYCLE 8 ON 08/22/2024,
     Route: 042
     Dates: start: 20240307, end: 20240822

REACTIONS (1)
  - Dysaesthesia [Unknown]

NARRATIVE: CASE EVENT DATE: 20241001
